FAERS Safety Report 10677342 (Version 2)
Quarter: 2015Q1

REPORT INFORMATION
  Report Type: Spontaneous
  Country: CH (occurrence: CH)
  Receive Date: 20141226
  Receipt Date: 20150305
  Transmission Date: 20150720
  Serious: Yes (Hospitalization)
  Sender: FDA-Public Use
  Company Number: CH-BRISTOL-MYERS SQUIBB COMPANY-BMS-2014-003293

PATIENT
  Age: 52 Year
  Sex: Female

DRUGS (5)
  1. CIMICIFUGA                         /01456805/ [Concomitant]
     Indication: MENOPAUSAL SYMPTOMS
     Dosage: UNK, QD
     Route: 048
  2. CANDESARTAN [Concomitant]
     Active Substance: CANDESARTAN
     Indication: CARDIAC DISORDER
     Dosage: 16 MG, QD
     Route: 048
  3. DIAMICRON [Concomitant]
     Active Substance: GLICLAZIDE
     Indication: DIABETES MELLITUS
     Dosage: 60 MG, BID
     Route: 065
  4. GLUCOPHAGE [Suspect]
     Active Substance: METFORMIN HYDROCHLORIDE
     Indication: TYPE 2 DIABETES MELLITUS
     Dosage: 1000 MG, BID
     Route: 048
     Dates: start: 201201, end: 2012
  5. METOPROLOL [Concomitant]
     Active Substance: METOPROLOL
     Indication: PRODUCT USED FOR UNKNOWN INDICATION
     Dosage: 25 MG, QD
     Route: 048

REACTIONS (2)
  - Chest pain [Unknown]
  - Angina pectoris [Unknown]

NARRATIVE: CASE EVENT DATE: 2014
